FAERS Safety Report 8340223-2 (Version None)
Quarter: 2012Q2

REPORT INFORMATION
  Report Type: 
  Country: None (occurrence: None)
  Receive Date: 20120507
  Receipt Date: 20120425
  Transmission Date: 20120825
  Serious: Yes (Other)
  Sender: FDA-Public Use
  Company Number: PHHY2012DE035582

PATIENT
  Sex: Female

DRUGS (6)
  1. RAMIPRIL [Concomitant]
  2. BISOPROLOL FUMARATE [Concomitant]
  3. HYDROCHLOROTHIAZIDE [Concomitant]
  4. FUROSEMIDE [Concomitant]
  5. AMLODIPINE [Concomitant]
  6. RASILEZ [Suspect]
     Dosage: 1 DF, QD
     Route: 048
     Dates: start: 20111201, end: 20120201

REACTIONS (4)
  - NEPHRITIC SYNDROME [None]
  - RENAL FAILURE [None]
  - GLOMERULOSCLEROSIS [None]
  - FIBROSIS [None]
